FAERS Safety Report 10084413 (Version 1)
Quarter: 2014Q2

REPORT INFORMATION
  Report Type: Spontaneous
  Country: US (occurrence: US)
  Receive Date: 20140417
  Receipt Date: 20140417
  Transmission Date: 20141212
  Serious: No
  Sender: FDA-Public Use
  Company Number: US-009507513-1404USA008636

PATIENT
  Age: 19 Year
  Sex: Female
  Weight: 58.96 kg

DRUGS (1)
  1. IMPLANON [Suspect]
     Indication: CONTRACEPTION
     Dosage: LEF ARM
     Route: 059
     Dates: start: 20111103

REACTIONS (3)
  - Depression [Unknown]
  - Amenorrhoea [Recovered/Resolved]
  - Menorrhagia [Unknown]
